FAERS Safety Report 7795571-1 (Version None)
Quarter: 2011Q3

REPORT INFORMATION
  Report Type: 
  Country: None (occurrence: None)
  Receive Date: 20110930
  Receipt Date: 20110922
  Transmission Date: 20111222
  Serious: Yes (Hospitalization, Other)
  Sender: FDA-Public Use
  Company Number: 2009SP021070

PATIENT
  Age: 27 Year
  Sex: Female
  Weight: 86.637 kg

DRUGS (3)
  1. NUVARING [Suspect]
     Indication: CONTRACEPTION
     Dates: start: 20050501, end: 20060501
  2. AMITRIPTYLINE HCL [Concomitant]
  3. NEURONTIN [Concomitant]

REACTIONS (30)
  - ABORTION INDUCED [None]
  - PRODUCT QUALITY ISSUE [None]
  - PRODUCT FORMULATION ISSUE [None]
  - OROPHARYNGEAL PAIN [None]
  - ECTOPIC PREGNANCY [None]
  - SUPRAVENTRICULAR EXTRASYSTOLES [None]
  - ACTIVITIES OF DAILY LIVING IMPAIRED [None]
  - PERIPHERAL ARTERIAL OCCLUSIVE DISEASE [None]
  - ANXIETY [None]
  - RETAINED PLACENTA OR MEMBRANES [None]
  - CORONARY ARTERY DISEASE [None]
  - CHOLECYSTITIS [None]
  - IMPAIRED WORK ABILITY [None]
  - ABORTION SPONTANEOUS [None]
  - HEPATITIS C ANTIBODY POSITIVE [None]
  - PALPITATIONS [None]
  - EUSTACHIAN TUBE DYSFUNCTION [None]
  - DEAFNESS [None]
  - ARTERIAL THROMBOSIS LIMB [None]
  - PERIPHERAL EMBOLISM [None]
  - ACUTE MYOCARDIAL INFARCTION [None]
  - SINUS TACHYCARDIA [None]
  - GALLBLADDER NECROSIS [None]
  - DEEP VEIN THROMBOSIS [None]
  - PAIN [None]
  - MATERNAL EXPOSURE BEFORE PREGNANCY [None]
  - ANAEMIA [None]
  - MENTAL DISORDER [None]
  - PROTEIN S DEFICIENCY [None]
  - PREGNANCY [None]
